FAERS Safety Report 9530698 (Version 1)
Quarter: 2013Q3

REPORT INFORMATION
  Report Type: Spontaneous
  Country: CA (occurrence: CA)
  Receive Date: 20130918
  Receipt Date: 20130918
  Transmission Date: 20140515
  Serious: Yes (Hospitalization)
  Sender: FDA-Public Use
  Company Number: CA-ROCHE-1275955

PATIENT
  Age: 47 Year
  Sex: Female
  Weight: 63 kg

DRUGS (15)
  1. KETOROLAC [Suspect]
     Indication: PRODUCT USED FOR UNKNOWN INDICATION
     Dosage: FREQUENCY AND THERAPY DURATION: ONCE
     Route: 042
  2. DEXAMETHASONE [Suspect]
     Indication: PRODUCT USED FOR UNKNOWN INDICATION
     Dosage: FREQUENCY AND THERAPY DURATION: ONCE
     Route: 042
  3. FENTANYL [Suspect]
     Indication: PRODUCT USED FOR UNKNOWN INDICATION
     Dosage: FREQUENCY AND THERAPY DURATION: ONCE
     Route: 042
  4. HYDROMORPHONE HYDROCHLORIDE [Suspect]
     Indication: PRODUCT USED FOR UNKNOWN INDICATION
     Dosage: FREQUENCY AND THERAPY DURATION: ONCE
     Route: 030
  5. LIDOCAINE [Suspect]
     Indication: PRODUCT USED FOR UNKNOWN INDICATION
     Dosage: FREQUENCY AND THERAPY DURATION: ONCE
     Route: 042
  6. PROPOFOL [Suspect]
     Indication: PRODUCT USED FOR UNKNOWN INDICATION
     Dosage: FREQUENCY AND THERAPY DURATION: ONCE
     Route: 042
  7. ROCURONIUM [Suspect]
     Indication: PRODUCT USED FOR UNKNOWN INDICATION
     Dosage: FREQUENCY AND THERAPY DURATION: ONCE
     Route: 042
  8. FLUOXETINE [Concomitant]
     Route: 065
  9. GLYCOPYRROLATE [Concomitant]
     Route: 065
  10. MIDAZOLAM HYDROCHLORIDE [Concomitant]
     Route: 030
  11. NEOSTIGMINE METHYLSULFATE [Concomitant]
     Route: 030
  12. OXYGEN [Concomitant]
     Dosage: GAS FOR INHALATION
     Route: 065
  13. SUMATRIPTAN [Concomitant]
     Dosage: 1 ML/ML; LIQUID INHALATION
     Route: 065
  14. SUPRANE [Concomitant]
     Route: 065
  15. ETHINYL ESTRADIOL [Concomitant]

REACTIONS (2)
  - Pulmonary oedema [Unknown]
  - Stress cardiomyopathy [Unknown]
